FAERS Safety Report 21522386 (Version 1)
Quarter: 2022Q4

REPORT INFORMATION
  Report Type: Spontaneous
  Country: AU (occurrence: AU)
  Receive Date: 20221028
  Receipt Date: 20221028
  Transmission Date: 20230113
  Serious: No
  Sender: FDA-Public Use
  Company Number: AU-PADAGIS-2022PAD00823

PATIENT

DRUGS (8)
  1. BETAMETHASONE DIPROPIONATE [Suspect]
     Active Substance: BETAMETHASONE DIPROPIONATE
     Indication: Necrobiosis lipoidica diabeticorum
     Dosage: UNK
     Route: 061
  2. DOXYCYCLINE [Suspect]
     Active Substance: DOXYCYCLINE
     Indication: Necrobiosis lipoidica diabeticorum
     Dosage: 50 MG TWICE DAILY
     Route: 065
  3. PENTOXIFYLLINE [Suspect]
     Active Substance: PENTOXIFYLLINE
     Indication: Necrobiosis lipoidica diabeticorum
     Dosage: 400 MG THREE TIMES DAILY
     Route: 065
  4. CALCIPOTRIENE [Suspect]
     Active Substance: CALCIPOTRIENE
     Indication: Necrobiosis lipoidica diabeticorum
     Dosage: UNK
     Route: 061
  5. TACROLIMUS [Concomitant]
     Active Substance: TACROLIMUS
     Indication: Necrobiosis lipoidica diabeticorum
     Dosage: UNK
     Route: 065
  6. CANNABIDIOL [Concomitant]
     Active Substance: CANNABIDIOL
     Indication: Product used for unknown indication
     Dosage: UNK
     Route: 061
  7. CANNABIDIOL [Concomitant]
     Active Substance: CANNABIDIOL
     Dosage: UNK
     Route: 048
  8. HYDROXYCHLOROQUINE [Concomitant]
     Active Substance: HYDROXYCHLOROQUINE
     Indication: Necrobiosis lipoidica diabeticorum
     Dosage: 200 MG TWICE DAILY FOR A PERIOD OF 3?4 MONTHS
     Route: 065

REACTIONS (3)
  - Hyperglycaemia [Unknown]
  - Therapy partial responder [Unknown]
  - Product use in unapproved indication [Unknown]
